FAERS Safety Report 24453783 (Version 2)
Quarter: 2024Q4

REPORT INFORMATION
  Report Type: Report from Study
  Country: ZA (occurrence: ZA)
  Receive Date: 20241017
  Receipt Date: 20241018
  Transmission Date: 20250115
  Serious: No
  Sender: ROCHE
  Company Number: ZA-ROCHE-3410193

PATIENT
  Sex: Male

DRUGS (1)
  1. RITUXIMAB [Suspect]
     Active Substance: RITUXIMAB
     Indication: Rheumatoid arthritis
     Dosage: DOSE SCHEDULED IN SEP/2023
     Route: 041
     Dates: start: 202303

REACTIONS (2)
  - White blood cell count increased [Unknown]
  - C-reactive protein increased [Unknown]
